FAERS Safety Report 9356411 (Version 3)
Quarter: 2014Q1

REPORT INFORMATION
  Report Type: Spontaneous
  Country: US (occurrence: US)
  Receive Date: 20130619
  Receipt Date: 20140325
  Transmission Date: 20141002
  Serious: Yes (Hospitalization)
  Sender: FDA-Public Use
  Company Number: US-B.I. PHARMACEUTICALS,INC./RIDGEFIELD-2013-BI-16858BP

PATIENT
  Age: 82 Year
  Sex: Male
  Weight: 113.4 kg

DRUGS (14)
  1. PRADAXA [Suspect]
     Indication: ATRIAL FIBRILLATION
     Dosage: 300 MG
     Route: 048
     Dates: start: 20111211, end: 20121020
  2. NITROGLYCERIN [Concomitant]
     Dosage: 0.2 MG
     Route: 065
  3. LEVOTHYROXINE [Concomitant]
     Dosage: 0.075 MG
     Route: 065
  4. SOTALOL [Concomitant]
     Route: 065
  5. KLOR-CON [Concomitant]
     Dosage: 20 MEQ
     Route: 065
  6. VYTORIN [Concomitant]
     Route: 065
  7. METOLAZONE [Concomitant]
     Dosage: 2.5 MG
     Route: 065
  8. SPIRONOLACTONE/HCTZ [Concomitant]
     Route: 065
  9. FUROSEMAIDE [Concomitant]
     Dosage: 120 MG
     Route: 065
  10. EXCEDRIN MIGRAINE [Concomitant]
     Route: 065
  11. LORAZEPAM [Concomitant]
     Route: 065
  12. GLUCOSAMINE [Concomitant]
     Dosage: 500 MG
     Route: 065
  13. MILK OF MAGNESIA [Concomitant]
     Route: 065
  14. VICODIN [Concomitant]
     Route: 065

REACTIONS (3)
  - Lower gastrointestinal haemorrhage [Unknown]
  - Iron deficiency anaemia [Unknown]
  - Coagulopathy [Unknown]
